FAERS Safety Report 11480482 (Version 1)
Quarter: 2015Q3

REPORT INFORMATION
  Report Type: Spontaneous
  Country: US (occurrence: US)
  Receive Date: 20150909
  Receipt Date: 20150909
  Transmission Date: 20151125
  Serious: No
  Sender: FDA-Public Use
  Company Number: US-JAZZ-2014-US-014191

PATIENT
  Age: 34 Year
  Sex: Male
  Weight: 90.7 kg

DRUGS (5)
  1. TESTOSTERONE INJECTION [Concomitant]
     Indication: HYPOGONADISM
     Dosage: 75 MG, QW
     Route: 030
     Dates: start: 2012
  2. HUMAN CHORIONIC GONADOTROPIN INJECTION [Concomitant]
     Indication: HYPOGONADISM
     Dosage: UNK
     Route: 058
     Dates: start: 2013
  3. ANASTROZOLE. [Concomitant]
     Active Substance: ANASTROZOLE
     Indication: HYPOGONADISM
     Dosage: 0.5 MG, UNK
     Route: 048
     Dates: start: 2013
  4. DEXEDRINE [Concomitant]
     Active Substance: DEXTROAMPHETAMINE SULFATE
     Indication: HYPERSOMNIA
     Dosage: 15 MG, BID
     Route: 048
     Dates: start: 2014
  5. XYREM [Suspect]
     Active Substance: SODIUM OXYBATE
     Indication: HYPERSOMNIA
     Dosage: 2.25 G, BID
     Route: 048
     Dates: start: 20141023

REACTIONS (6)
  - Cognitive disorder [Not Recovered/Not Resolved]
  - Hyperhidrosis [Not Recovered/Not Resolved]
  - Condition aggravated [Not Recovered/Not Resolved]
  - Irritability [Not Recovered/Not Resolved]
  - Hangover [Not Recovered/Not Resolved]
  - Product use issue [Unknown]

NARRATIVE: CASE EVENT DATE: 20141024
